FAERS Safety Report 5037509-6 (Version None)
Quarter: 2006Q2

REPORT INFORMATION
  Report Type: 
  Country: None (occurrence: None)
  Receive Date: 20060623
  Receipt Date: 20060612
  Transmission Date: 20061013
  Serious: Yes (Life-Threatening, Hospitalization)
  Sender: FDA-Public Use
  Company Number: 2006RR-02628

PATIENT
  Age: 70 Year
  Sex: Female

DRUGS (3)
  1. METFORMIN [Suspect]
  2. UNSPECIFIED ANGIOTENSIN-CONVERTING ENZYME (UNSPECIFIED ANGIOTENSIN-CON [Suspect]
  3. UNSPECIFIED NON-STEROIDAL ANTI-INFLAMMATORY (NSAID) (UNSPECIFIED NON-S [Suspect]

REACTIONS (3)
  - HAEMODIALYSIS [None]
  - HYPOTENSION [None]
  - LACTIC ACIDOSIS [None]
